FAERS Safety Report 18556234 (Version 3)
Quarter: 2021Q3

REPORT INFORMATION
  Report Type: Report from Study
  Country: None (occurrence: US)
  Receive Date: 20201128
  Receipt Date: 20210727
  Transmission Date: 20211014
  Serious: No
  Sender: FDA-Public Use
  Company Number: US-ABBVIE-20K-163-3664881-00

PATIENT
  Sex: Female

DRUGS (1)
  1. HUMIRA [Suspect]
     Active Substance: ADALIMUMAB
     Indication: RHEUMATOID ARTHRITIS
     Route: 058
     Dates: start: 20201006

REACTIONS (13)
  - Fatigue [Not Recovered/Not Resolved]
  - Inflammation [Unknown]
  - Nasal congestion [Unknown]
  - Chills [Unknown]
  - Visual impairment [Unknown]
  - Joint stiffness [Recovering/Resolving]
  - Injection site paraesthesia [Not Recovered/Not Resolved]
  - Discomfort [Recovering/Resolving]
  - Injection site swelling [Not Recovered/Not Resolved]
  - Pain [Recovering/Resolving]
  - Arthralgia [Recovering/Resolving]
  - Dyspnoea [Unknown]
  - Joint swelling [Recovering/Resolving]

NARRATIVE: CASE EVENT DATE: 2020
